FAERS Safety Report 24623481 (Version 1)
Quarter: 2024Q4

REPORT INFORMATION
  Report Type: Spontaneous
  Country: IT (occurrence: IT)
  Receive Date: 20241115
  Receipt Date: 20241115
  Transmission Date: 20250114
  Serious: Yes (Hospitalization, Other)
  Sender: ALKEM
  Company Number: IT-ALKEM LABORATORIES LIMITED-IT-ALKEM-2024-20758

PATIENT
  Age: 6 Year
  Sex: Female

DRUGS (4)
  1. CEFIXIME [Suspect]
     Active Substance: CEFIXIME
     Indication: Product used for unknown indication
     Dosage: UNK
     Route: 048
  2. AMOXICILLIN [Suspect]
     Active Substance: AMOXICILLIN
     Indication: Product used for unknown indication
     Dosage: UNK, (150-350 MILLIGRAM), (SYRUP)
     Route: 048
  3. AMOXICILLIN [Suspect]
     Active Substance: AMOXICILLIN
     Dosage: 50 MILLIGRAM/KILOGRAM, QD, (SYRUP), (IN TWO DOSES, ADMINISTERED EVERY 30 MINUTE)
     Route: 048
  4. AMOXICILLIN [Suspect]
     Active Substance: AMOXICILLIN
     Dosage: 350 MILLIGRAM, (LAST DOSE)
     Route: 048

REACTIONS (2)
  - Enterocolitis [Recovered/Resolved]
  - Urticaria [Unknown]
